FAERS Safety Report 20582276 (Version 1)
Quarter: 2022Q1

REPORT INFORMATION
  Report Type: Spontaneous
  Country: US (occurrence: None)
  Receive Date: 20220311
  Receipt Date: 20220311
  Transmission Date: 20220424
  Serious: Yes (Hospitalization)
  Sender: FDA-Public Use
  Company Number: 2022A108159

PATIENT

DRUGS (1)
  1. EVUSHELD [Suspect]
     Active Substance: CILGAVIMAB\TIXAGEVIMAB
     Dosage: 300.0MG ONCE/SINGLE ADMINISTRATION
     Route: 030
     Dates: start: 20220122

REACTIONS (3)
  - Syncope [Unknown]
  - Seizure [Unknown]
  - Sinoatrial block [Unknown]

NARRATIVE: CASE EVENT DATE: 20220122
